FAERS Safety Report 17251056 (Version 1)
Quarter: 2020Q1

REPORT INFORMATION
  Report Type: Spontaneous
  Country: US (occurrence: US)
  Receive Date: 20200108
  Receipt Date: 20200108
  Transmission Date: 20200409
  Serious: Yes (Hospitalization, Disabling)
  Sender: FDA-Public Use
  Company Number: None

PATIENT
  Age: 18 Year
  Sex: Female
  Weight: 101.9 kg

DRUGS (1)
  1. IMPLANON [Suspect]
     Active Substance: ETONOGESTREL

REACTIONS (16)
  - Dizziness [None]
  - Amenorrhoea [None]
  - Insulin resistance [None]
  - Weight increased [None]
  - Mood swings [None]
  - Food craving [None]
  - Implantation complication [None]
  - Salt craving [None]
  - Depression [None]
  - Sexually inappropriate behaviour [None]
  - Poor peripheral circulation [None]
  - Seizure [None]
  - Suicide attempt [None]
  - Hepatic congestion [None]
  - Hormone level abnormal [None]
  - Syncope [None]

NARRATIVE: CASE EVENT DATE: 20130115
